FAERS Safety Report 6096899-6 (Version None)
Quarter: 2009Q1

REPORT INFORMATION
  Report Type: 
  Country: None (occurrence: None)
  Receive Date: 20090225
  Receipt Date: 20090213
  Transmission Date: 20090719
  Serious: Yes (Hospitalization)
  Sender: FDA-Public Use
  Company Number: DSA_33231_2009

PATIENT
  Sex: Male

DRUGS (3)
  1. LORAZEPAM [Suspect]
     Dosage: (20 MG 1X, NOT THE PRESCRIBED AMOUNT ORAL)
     Dates: start: 20090212, end: 20090212
  2. VENLAFAXINE HCL [Suspect]
     Dosage: (750 MG 1X, NOT THE PRESCRIBED AMOUNT ORAL)
     Route: 048
     Dates: start: 20090212, end: 20090212
  3. ETHANOL [Suspect]
     Dosage: 1BOTTLE OF VODKA ORAL
     Route: 048

REACTIONS (5)
  - ALCOHOL ABUSE [None]
  - DRUG ABUSE [None]
  - FATIGUE [None]
  - MULTIPLE DRUG OVERDOSE INTENTIONAL [None]
  - TACHYCARDIA [None]
